FAERS Safety Report 9505946 (Version 1)
Quarter: 2013Q1

REPORT INFORMATION
  Report Type: Spontaneous
  Country: US (occurrence: None)
  Receive Date: 20130305
  Receipt Date: 20130305
  Transmission Date: 20140127
  Serious: No
  Sender: FDA-Public Use
  Company Number: 1000040298

PATIENT
  Sex: Female
  Weight: 47 kg

DRUGS (1)
  1. DALIRESP [Suspect]

REACTIONS (2)
  - Diarrhoea [None]
  - Weight decreased [None]
